FAERS Safety Report 9051975 (Version 1)
Quarter: 2013Q1

REPORT INFORMATION
  Report Type: Spontaneous
  Country: US (occurrence: None)
  Receive Date: 20130129
  Receipt Date: 20130129
  Transmission Date: 20140127
  Serious: Yes (Hospitalization)
  Sender: FDA-Public Use
  Company Number: None

PATIENT
  Sex: Female
  Weight: 109.77 kg

DRUGS (3)
  1. KENALOG [Suspect]
     Dates: start: 20120314
  2. BUPIVICAINE [Suspect]
     Dates: start: 20120503
  3. OCTAFLUOROPROPANE [Suspect]
     Dates: start: 20120523

REACTIONS (1)
  - Drug ineffective [None]
